FAERS Safety Report 5460687-1 (Version None)
Quarter: 2007Q3

REPORT INFORMATION
  Report Type: 
  Country: None (occurrence: None)
  Receive Date: 20070918
  Receipt Date: 20070904
  Transmission Date: 20080115
  Serious: Yes (Hospitalization)
  Sender: FDA-Public Use
  Company Number: POMP-10887

PATIENT
  Age: 1 Year
  Sex: Male
  Weight: 9.63 kg

DRUGS (3)
  1. MYOZYME [Suspect]
     Indication: GLYCOGEN STORAGE DISEASE TYPE II
     Dosage: 20 MG/KG IV
     Route: 042
     Dates: start: 20051222
  2. PROPRANOLOL [Concomitant]
  3. CAPTOPRIL [Concomitant]

REACTIONS (13)
  - CRYING [None]
  - CYANOSIS [None]
  - LETHARGY [None]
  - NAUSEA [None]
  - OXYGEN SATURATION DECREASED [None]
  - PALLOR [None]
  - PALMAR ERYTHEMA [None]
  - RASH [None]
  - TACHYCARDIA [None]
  - TACHYPNOEA [None]
  - TREMOR [None]
  - URTICARIA [None]
  - VOMITING [None]
